FAERS Safety Report 16324423 (Version 4)
Quarter: 2020Q2

REPORT INFORMATION
  Report Type: Spontaneous
  Country: US (occurrence: US)
  Receive Date: 20190517
  Receipt Date: 20200416
  Transmission Date: 20200713
  Serious: Yes (Hospitalization, Other)
  Sender: FDA-Public Use
  Company Number: US-BIOGEN-2019BI00733724

PATIENT
  Age: 43 Year
  Sex: Female

DRUGS (1)
  1. TYSABRI [Suspect]
     Active Substance: NATALIZUMAB
     Indication: MULTIPLE SCLEROSIS
     Route: 065
     Dates: start: 20181126

REACTIONS (7)
  - Uhthoff^s phenomenon [Unknown]
  - Blindness unilateral [Unknown]
  - Abscess limb [Recovered/Resolved]
  - Furuncle [Recovered/Resolved]
  - Tooth infection [Not Recovered/Not Resolved]
  - Cognitive disorder [Unknown]
  - Multiple sclerosis relapse [Recovered/Resolved]

NARRATIVE: CASE EVENT DATE: 201904
